FAERS Safety Report 7186832-8 (Version None)
Quarter: 2010Q4

REPORT INFORMATION
  Report Type: 
  Country: None (occurrence: None)
  Receive Date: 20101222
  Receipt Date: 20101214
  Transmission Date: 20110411
  Serious: Yes (Other)
  Sender: FDA-Public Use
  Company Number: B0329370A

PATIENT
  Sex: Male
  Weight: 63 kg

DRUGS (36)
  1. ALKERAN [Suspect]
     Indication: STEM CELL TRANSPLANT
     Dosage: 150MG PER DAY
     Route: 042
     Dates: start: 20040308, end: 20040309
  2. ISOTONIC SODIUM CHLORIDE SOLUTION [Concomitant]
     Route: 042
     Dates: start: 20040308, end: 20040313
  3. GRANISETRON HYDROCHLORIDE [Concomitant]
     Indication: VOMITING
     Route: 042
     Dates: start: 20040308, end: 20040309
  4. HUMAN INSULIN [Concomitant]
     Indication: DIABETES MELLITUS
     Route: 058
     Dates: start: 20040303
  5. HUMAN HAPTOGLOBIN [Concomitant]
     Dosage: 1000MG PER DAY
     Route: 042
     Dates: start: 20040311, end: 20040311
  6. FREEZE DRIED SULPHONATED HUMAN NORMAL IMMUNOGLOBULIN [Concomitant]
     Dosage: 5G PER DAY
     Route: 042
     Dates: start: 20040312, end: 20040319
  7. HYDROCORTISONE SODIUM SUCCINATE [Concomitant]
     Dosage: 100MG PER DAY
     Route: 042
     Dates: start: 20040311, end: 20040311
  8. LENOGRASTIM [Concomitant]
     Dosage: 250UG PER DAY
     Route: 042
     Dates: start: 20040312, end: 20040325
  9. POLYMYXIN-B-SULFATE [Concomitant]
     Dosage: 300U PER DAY
     Route: 048
     Dates: start: 20040307, end: 20040325
  10. NYSTATIN [Concomitant]
     Dosage: 3U PER DAY
     Route: 048
     Dates: start: 20040307, end: 20040325
  11. REBAMIPIDE [Concomitant]
     Route: 048
     Dates: start: 20040307, end: 20040325
  12. AMPHOTERICIN B [Concomitant]
     Dosage: 12ML PER DAY
     Route: 048
     Dates: start: 20040307, end: 20040325
  13. ALLOPURINOL [Concomitant]
     Dosage: 3U PER DAY
     Route: 048
     Dates: start: 20040307, end: 20040312
  14. SOLDEM 3A [Concomitant]
     Dosage: 2000ML PER DAY
     Route: 042
     Dates: start: 20040309, end: 20040313
  15. SOLDEM 3A [Concomitant]
     Dosage: 2000ML PER DAY
     Route: 042
     Dates: start: 20040309, end: 20040313
  16. PENFILL 30R [Concomitant]
     Indication: DIABETES MELLITUS
     Dosage: 28IU PER DAY
     Route: 058
     Dates: start: 20040303, end: 20040308
  17. VENOGLOBULIN [Concomitant]
     Indication: TRANSPLANT
     Dosage: 5MG PER DAY
     Route: 065
     Dates: start: 20040312, end: 20040319
  18. NEUTROGIN [Concomitant]
  19. UNSPECIFIED DRUG [Concomitant]
     Indication: TRANSPLANT
     Dosage: 3G PER DAY
     Route: 048
     Dates: start: 20040307, end: 20040325
  20. COLEPOLI R [Concomitant]
     Indication: TRANSPLANT
     Dosage: 3G PER DAY
     Route: 048
     Dates: start: 20040307, end: 20040325
  21. ALLORIN [Concomitant]
     Indication: TRANSPLANT
     Dosage: 300MG PER DAY
     Route: 048
     Dates: start: 20040307, end: 20040325
  22. MUCOSTA [Concomitant]
     Indication: TRANSPLANT
     Dosage: 300MG PER DAY
     Route: 048
     Dates: start: 20040307, end: 20040325
  23. PERORIC [Concomitant]
     Route: 048
     Dates: start: 20040314, end: 20040321
  24. KYTRIL [Concomitant]
     Indication: VOMITING
     Route: 042
     Dates: start: 20040308, end: 20040319
  25. CHINESE MEDICINE [Concomitant]
     Route: 048
     Dates: start: 20040307, end: 20040325
  26. SAXIZON [Concomitant]
     Dates: start: 20040311, end: 20040329
  27. AMOBAN [Concomitant]
     Route: 048
     Dates: start: 20040311, end: 20040311
  28. MYSLEE [Concomitant]
     Route: 048
     Dates: start: 20040313
  29. PYRINAZIN [Concomitant]
     Dosage: .4G PER DAY
     Route: 048
     Dates: start: 20040316
  30. MENAMIN [Concomitant]
     Route: 030
     Dates: start: 20040318, end: 20080323
  31. MAXIPIME [Concomitant]
     Dosage: 4G PER DAY
     Route: 042
     Dates: start: 20040315, end: 20040322
  32. CIPROFLOXACIN HCL [Concomitant]
     Dosage: 300MG PER DAY
     Route: 042
     Dates: start: 20040319, end: 20040322
  33. LOXONIN [Concomitant]
     Route: 048
     Dates: start: 20040320, end: 20040322
  34. FUNGUARD [Concomitant]
     Dosage: 300MG PER DAY
     Route: 042
     Dates: start: 20040321, end: 20080323
  35. CRAVIT [Concomitant]
     Dosage: 300MG PER DAY
     Route: 048
     Dates: start: 20040321, end: 20040323
  36. FUNGIZONE [Concomitant]
     Indication: TRANSPLANT
     Dosage: 12ML PER DAY
     Route: 048
     Dates: start: 20040307, end: 20040325

REACTIONS (3)
  - ATRIAL FIBRILLATION [None]
  - HEART RATE INCREASED [None]
  - PALPITATIONS [None]
